FAERS Safety Report 4943051-0 (Version None)
Quarter: 2006Q1

REPORT INFORMATION
  Report Type: 
  Country: None (occurrence: None)
  Receive Date: 20060309
  Receipt Date: 20060221
  Transmission Date: 20060701
  Serious: Yes (Other)
  Sender: FDA-Public Use
  Company Number: US170403

PATIENT

DRUGS (1)
  1. ENBREL [Suspect]

REACTIONS (2)
  - HEPATITIS [None]
  - HEPATOBILIARY DISEASE [None]
